FAERS Safety Report 6313408-4 (Version None)
Quarter: 2009Q3

REPORT INFORMATION
  Report Type: 
  Country: None (occurrence: None)
  Receive Date: 20090814
  Receipt Date: 20090814
  Transmission Date: 20100115
  Serious: Yes (Hospitalization)
  Sender: FDA-Public Use
  Company Number: None

PATIENT
  Sex: Male
  Weight: 37 kg

DRUGS (2)
  1. BACLOFEN [Suspect]
     Indication: MUSCLE SPASMS
     Dosage: 10 MG TID PO
     Route: 048
     Dates: start: 20090407, end: 20090625
  2. BACLOFEN [Suspect]
     Indication: SPINAL DISORDER
     Dosage: 10 MG TID PO
     Route: 048
     Dates: start: 20090407, end: 20090625

REACTIONS (12)
  - AGITATION [None]
  - DEPRESSED LEVEL OF CONSCIOUSNESS [None]
  - DRUG TOXICITY [None]
  - DYSARTHRIA [None]
  - FATIGUE [None]
  - FEELING DRUNK [None]
  - HALLUCINATIONS, MIXED [None]
  - HYPONATRAEMIA [None]
  - MENTAL STATUS CHANGES [None]
  - PAIN [None]
  - SOMNOLENCE [None]
  - UNRESPONSIVE TO STIMULI [None]
